FAERS Safety Report 5505126-7 (Version None)
Quarter: 2007Q4

REPORT INFORMATION
  Report Type: 
  Country: None (occurrence: None)
  Receive Date: 20071031
  Receipt Date: 20071015
  Transmission Date: 20080405
  Serious: Yes (Hospitalization)
  Sender: FDA-Public Use
  Company Number: SPV1-2007-04541

PATIENT
  Age: 45 Year
  Sex: Male
  Weight: 93 kg

DRUGS (3)
  1. CARBATROL [Suspect]
     Indication: CONVULSION
     Dosage: 300 MG, 3 CAPSULES IN THE AM AND 4 IN THE PM, ORAL
     Route: 048
     Dates: start: 20020101
  2. LEXAPRO (ESCITALOPRAM OXALAT) TABLET [Concomitant]
  3. TOPAMAX [Concomitant]

REACTIONS (1)
  - NEPHROLITHIASIS [None]
